FAERS Safety Report 6750587-9 (Version None)
Quarter: 2010Q2

REPORT INFORMATION
  Report Type: 
  Country: None (occurrence: None)
  Receive Date: 20100528
  Receipt Date: 20100528
  Transmission Date: 20101027
  Serious: No
  Sender: FDA-Public Use
  Company Number: None

PATIENT
  Age: 56 Year
  Sex: Male
  Weight: 106.5953 kg

DRUGS (26)
  1. BYETTA [Suspect]
     Indication: DIABETES MELLITUS
     Dosage: 10MCG DAILY IV
     Route: 042
     Dates: start: 20070701, end: 20100527
  2. PLAVIX [Suspect]
     Indication: THROMBOSIS
     Dosage: 75 MG EVERY OTHER DAY PO
     Route: 048
     Dates: start: 20100210, end: 20100527
  3. GLIMIPIRIDE [Concomitant]
  4. ACTOS [Concomitant]
  5. METFORMIN [Concomitant]
  6. ZESTRIL [Concomitant]
  7. FENOFIBRATE [Concomitant]
  8. VITAMIN C [Concomitant]
  9. ALPHABETIC, [Concomitant]
  10. BYETTA [Concomitant]
  11. LOVAZA [Concomitant]
  12. VITAMINS D, [Concomitant]
  13. VITAMINE E [Concomitant]
  14. ZEGERID [Concomitant]
  15. ALPHA LIPOIC ACID [Concomitant]
  16. COENZYME [Concomitant]
  17. GLIMIPIRIDE [Concomitant]
  18. ECOTRIN [Concomitant]
  19. METFORMIN [Concomitant]
  20. PLAVIX [Concomitant]
  21. ZETIA [Concomitant]
  22. VITAMIN C [Concomitant]
  23. LOVAZA [Concomitant]
  24. HIGH DOSE OF ST. JOHN'S WORT [Concomitant]
  25. ALPHA LIPOIC ACID [Concomitant]
  26. COENZYME Q10 [Concomitant]

REACTIONS (18)
  - ACNE [None]
  - BLOOD GLUCOSE DECREASED [None]
  - BLOOD MAGNESIUM DECREASED [None]
  - CONTUSION [None]
  - DECREASED APPETITE [None]
  - DRUG INEFFECTIVE [None]
  - DRUG TOLERANCE DECREASED [None]
  - DYSGEUSIA [None]
  - ECONOMIC PROBLEM [None]
  - ERYTHEMA [None]
  - MASS [None]
  - MUSCLE SPASMS [None]
  - NASAL DRYNESS [None]
  - PAIN [None]
  - SKIN DISCOLOURATION [None]
  - TREATMENT NONCOMPLIANCE [None]
  - TREMOR [None]
  - VISUAL IMPAIRMENT [None]
